FAERS Safety Report 7316903-4 (Version None)
Quarter: 2011Q1

REPORT INFORMATION
  Report Type: 
  Country: None (occurrence: None)
  Receive Date: 20110226
  Receipt Date: 20100908
  Transmission Date: 20110831
  Serious: No
  Sender: FDA-Public Use
  Company Number: US-ALLERGAN-1006634US

PATIENT
  Age: 55 Year
  Sex: Female
  Weight: 72.562 kg

DRUGS (3)
  1. PHENTERMINE [Concomitant]
  2. BOTOX COSMETIC [Suspect]
     Indication: SKIN WRINKLING
     Dosage: 32 UNITS, SINGLE
     Route: 030
     Dates: start: 20100421, end: 20100421
  3. HYDROCHLOROTHIAZIDE [Concomitant]

REACTIONS (4)
  - CONJUNCTIVAL HYPERAEMIA [None]
  - DYSPNOEA [None]
  - EYELID OEDEMA [None]
  - FACIAL PARESIS [None]
